FAERS Safety Report 24968373 (Version 1)
Quarter: 2025Q1

REPORT INFORMATION
  Report Type: Spontaneous
  Country: GB (occurrence: GB)
  Receive Date: 20250214
  Receipt Date: 20250214
  Transmission Date: 20250409
  Serious: Yes (Disabling, Other)
  Sender: SANDOZ
  Company Number: GB-MHRA-MED-202412121217583930-QVTCB

PATIENT
  Sex: Female
  Weight: 97 kg

DRUGS (1)
  1. ZOMETA [Suspect]
     Active Substance: ZOLEDRONIC ACID
     Indication: Metastasis
     Route: 065
     Dates: start: 20231105

REACTIONS (2)
  - Osteonecrosis of jaw [Not Recovered/Not Resolved]
  - Pain [Unknown]

NARRATIVE: CASE EVENT DATE: 20241212
